FAERS Safety Report 7204284-6 (Version None)
Quarter: 2010Q4

REPORT INFORMATION
  Report Type: 
  Country: None (occurrence: None)
  Receive Date: 20101230
  Receipt Date: 20101222
  Transmission Date: 20110411
  Serious: Yes (Other)
  Sender: FDA-Public Use
  Company Number: DE-ROCHE-748300

PATIENT
  Age: 76 Year
  Sex: Female

DRUGS (2)
  1. HERCEPTIN [Suspect]
     Indication: BREAST CANCER
     Dosage: 4 INFUSIONS ALREADY GIVEN
     Route: 042
  2. 1 CONCOMITANT DRUG [Concomitant]

REACTIONS (1)
  - STATUS ASTHMATICUS [None]
